FAERS Safety Report 7227048-6 (Version None)
Quarter: 2011Q1

REPORT INFORMATION
  Report Type: 
  Country: None (occurrence: None)
  Receive Date: 20110114
  Receipt Date: 20101122
  Transmission Date: 20110831
  Serious: Yes (Other)
  Sender: FDA-Public Use
  Company Number: GB-BAYER-2010-002451

PATIENT

DRUGS (2)
  1. LEPIRUDIN [Suspect]
     Dosage: DAILY DOSE 48 MG
     Route: 042
  2. LEPIRUDIN [Suspect]
     Dosage: 10 MG, ONCE
     Route: 042

REACTIONS (2)
  - HAEMORRHAGE [None]
  - MEDICATION ERROR [None]
